FAERS Safety Report 5335332-6 (Version None)
Quarter: 2007Q1

REPORT INFORMATION
  Report Type: 
  Country: None (occurrence: None)
  Receive Date: 20070327
  Receipt Date: 20061212
  Transmission Date: 20070707
  Serious: Yes (Other)
  Sender: FDA-Public Use
  Company Number: PHEH2006US15215

PATIENT
  Age: 6 Year
  Sex: Male
  Weight: 23.1 kg

DRUGS (4)
  1. FOCALIN XR [Suspect]
     Indication: ATTENTION DEFICIT/HYPERACTIVITY DISORDER
     Dosage: 10 MG QD ORAL
     Route: 048
     Dates: start: 20050801, end: 20061001
  2. ZYRTEC [Concomitant]
  3. FLOVENT [Concomitant]
  4. ALBUTEROL [Concomitant]

REACTIONS (1)
  - PSYCHOTIC DISORDER [None]
